FAERS Safety Report 4656658-5 (Version None)
Quarter: 2005Q2

REPORT INFORMATION
  Report Type: 
  Country: None (occurrence: None)
  Receive Date: 20050331
  Receipt Date: 20041015
  Transmission Date: 20051028
  Serious: No
  Sender: FDA-Public Use
  Company Number: US095647

PATIENT
  Age: 68 Year
  Sex: Female
  Weight: 97.8 kg

DRUGS (10)
  1. NEULASTA [Suspect]
     Indication: CHEMOTHERAPY
     Dosage: 6 MG, 1 IN 1 DAYS, SC
     Route: 058
     Dates: start: 20041012
  2. CYCLOPHOSPHAMIDE [Concomitant]
  3. DOXORUBICIN HYDROCHLORIDE [Concomitant]
  4. CETIRIZINE HCL [Concomitant]
  5. FLUTICASONE/SALMETEROL [Concomitant]
  6. VALSARTAN [Concomitant]
  7. ONDANSETRON HYDROCHLORIDE [Concomitant]
  8. PROCHLORPERAZINE EDISYLATE [Concomitant]
  9. DEXAMETHASONE [Concomitant]
  10. PALONOSETRON HYDROCHLORIDE [Concomitant]

REACTIONS (2)
  - ANAPHYLACTIC REACTION [None]
  - HYPERSENSITIVITY [None]
